FAERS Safety Report 6175687-6 (Version None)
Quarter: 2009Q2

REPORT INFORMATION
  Report Type: 
  Country: None (occurrence: None)
  Receive Date: 20090427
  Receipt Date: 20090108
  Transmission Date: 20091009
  Serious: Yes (Other)
  Sender: FDA-Public Use
  Company Number: TEST00209000134

PATIENT
  Age: 53 Year
  Sex: Male
  Weight: 79.545 kg

DRUGS (2)
  1. ANDROGEL [Suspect]
     Indication: BLOOD TESTOSTERONE DECREASED
     Dosage: SEE IMAGE, TRANSCUTANEOUS
     Dates: start: 20080601, end: 20080801
  2. ANDROGEL [Suspect]
     Indication: BLOOD TESTOSTERONE DECREASED
     Dosage: SEE IMAGE, TRANSCUTANEOUS
     Dates: start: 20080801, end: 20081201

REACTIONS (3)
  - DRUG INEFFECTIVE [None]
  - PROSTATE CANCER [None]
  - PROSTATIC SPECIFIC ANTIGEN INCREASED [None]
